FAERS Safety Report 5985278-5 (Version None)
Quarter: 2008Q4

REPORT INFORMATION
  Report Type: 
  Country: None (occurrence: None)
  Receive Date: 20081203
  Receipt Date: 20081121
  Transmission Date: 20090506
  Serious: Yes (Hospitalization)
  Sender: FDA-Public Use
  Company Number: GXKR2008JP11181

PATIENT
  Age: 78 Year
  Sex: Male

DRUGS (1)
  1. PANAPIDIN SANDOZ (NGX) (TICLOPIDINE) UNKNOWN [Suspect]
     Dosage: ORAL
     Route: 048
     Dates: start: 20081101, end: 20081101

REACTIONS (1)
  - INTERSTITIAL LUNG DISEASE [None]
